FAERS Safety Report 7777523-0 (Version None)
Quarter: 2011Q3

REPORT INFORMATION
  Report Type: 
  Country: None (occurrence: None)
  Receive Date: 20110926
  Receipt Date: 20110912
  Transmission Date: 20111222
  Serious: Yes (Other)
  Sender: FDA-Public Use
  Company Number: CA-ELI_LILLY_AND_COMPANY-CA201109002914

PATIENT
  Sex: Male

DRUGS (2)
  1. ZYPREXA [Suspect]
     Dosage: 1 DF, UNKNOWN
  2. ZYPREXA [Suspect]
     Dosage: 5 MG, UNK

REACTIONS (4)
  - PANCREATIC NEOPLASM [None]
  - ERUCTATION [None]
  - IRRITABLE BOWEL SYNDROME [None]
  - PANCREATITIS [None]
